FAERS Safety Report 16685093 (Version 2)
Quarter: 2019Q3

REPORT INFORMATION
  Report Type: Spontaneous
  Country: FR (occurrence: FR)
  Receive Date: 20190808
  Receipt Date: 20190809
  Transmission Date: 20191004
  Serious: Yes (Other)
  Sender: FDA-Public Use
  Company Number: FR-TEVA-2019-FR-1090275

PATIENT
  Age: 72 Year
  Sex: Male
  Weight: 60 kg

DRUGS (4)
  1. DARZALEX [Suspect]
     Active Substance: DARATUMUMAB
     Indication: PLASMA CELL MYELOMA
     Dosage: 100 MILLIGRAM
     Route: 041
     Dates: start: 20170310
  2. ENDOXAN [Suspect]
     Active Substance: CYCLOPHOSPHAMIDE
     Indication: PLASMA CELL MYELOMA
     Dosage: 300 MG/M2
     Route: 048
     Dates: start: 20180928
  3. PREDNISONE. [Suspect]
     Active Substance: PREDNISONE
     Indication: PLASMACYTOMA
     Dosage: 100 MILLIGRAM
     Route: 048
     Dates: start: 20180913
  4. ZOMETA [Concomitant]
     Active Substance: ZOLEDRONIC ACID

REACTIONS (1)
  - Cytomegalovirus chorioretinitis [Not Recovered/Not Resolved]

NARRATIVE: CASE EVENT DATE: 201907
